FAERS Safety Report 16507775 (Version 3)
Quarter: 2019Q3

REPORT INFORMATION
  Report Type: Spontaneous
  Country: US (occurrence: US)
  Receive Date: 20190702
  Receipt Date: 20190816
  Transmission Date: 20191004
  Serious: No
  Sender: FDA-Public Use
  Company Number: US-UNITED THERAPEUTICS-UNT-2019-008475

PATIENT
  Age: 62 Year
  Sex: Male
  Weight: 63.95 kg

DRUGS (7)
  1. REMODULIN [Suspect]
     Active Substance: TREPROSTINIL
     Indication: PULMONARY ARTERIAL HYPERTENSION
     Dosage: 0.034 ?G/KG, CONTINUING
     Route: 058
  2. SILDENAFIL CITRATE. [Concomitant]
     Active Substance: SILDENAFIL CITRATE
     Indication: PRODUCT USED FOR UNKNOWN INDICATION
     Dosage: UNK
     Route: 065
  3. REMODULIN [Suspect]
     Active Substance: TREPROSTINIL
     Indication: PULMONARY ARTERIAL HYPERTENSION
     Dosage: 0.010 ?G/KG, CONTINUING
     Route: 058
     Dates: start: 20190410
  4. REMODULIN [Suspect]
     Active Substance: TREPROSTINIL
     Dosage: 0.027 ?G/KG, CONTINUING
     Route: 058
  5. OPSUMIT [Concomitant]
     Active Substance: MACITENTAN
     Indication: PRODUCT USED FOR UNKNOWN INDICATION
     Dosage: UNK
     Route: 065
  6. REMODULIN [Suspect]
     Active Substance: TREPROSTINIL
     Dosage: 0.031 ?G/KG, CONTINUING
     Route: 058
  7. VERAPAMIL [Concomitant]
     Active Substance: VERAPAMIL HYDROCHLORIDE
     Indication: PRODUCT USED FOR UNKNOWN INDICATION
     Dosage: UNK
     Route: 065

REACTIONS (13)
  - Infusion site irritation [Recovered/Resolved]
  - Infusion site erythema [Unknown]
  - Infusion site warmth [Unknown]
  - Treatment noncompliance [Unknown]
  - Hypersomnia [Unknown]
  - Headache [Unknown]
  - Malaise [Unknown]
  - Infusion site haemorrhage [Recovered/Resolved]
  - Infusion site pruritus [Not Recovered/Not Resolved]
  - Infusion site pain [Unknown]
  - Infusion site inflammation [Unknown]
  - Fatigue [Unknown]
  - Vomiting [Unknown]

NARRATIVE: CASE EVENT DATE: 2019
